FAERS Safety Report 10648965 (Version 2)
Quarter: 2016Q2

REPORT INFORMATION
  Report Type: Not Available
  Country: SE (occurrence: SE)
  Receive Date: 20141212
  Receipt Date: 20160607
  Transmission Date: 20160815
  Serious: Yes (Hospitalization, Other)
  Sender: FDA-Public Use
  Company Number: SE-MUNDIPHARMA DS AND PHARMACOVIGILANCE-GBR-2014-0024301

PATIENT
  Age: 70 Year
  Sex: Male

DRUGS (5)
  1. BURINEX [Concomitant]
     Active Substance: BUMETANIDE
  2. CLOXACILLIN SODIUM [Suspect]
     Active Substance: CLOXACILLIN SODIUM
     Indication: PRODUCT USED FOR UNKNOWN INDICATION
     Dosage: UNK
     Route: 065
     Dates: end: 201411
  3. FURIX [Suspect]
     Active Substance: FUROSEMIDE
     Indication: PRODUCT USED FOR UNKNOWN INDICATION
     Dosage: UNK
     Route: 042
     Dates: start: 20141120, end: 20141125
  4. FURIX [Suspect]
     Active Substance: FUROSEMIDE
     Dosage: UNK
     Route: 065
     Dates: start: 20141111
  5. OXYNORM [Suspect]
     Active Substance: OXYCODONE HYDROCHLORIDE
     Indication: PRODUCT USED FOR UNKNOWN INDICATION
     Route: 065
     Dates: end: 20141111

REACTIONS (3)
  - Rash [Unknown]
  - Cutaneous vasculitis [Unknown]
  - Blister [Unknown]

NARRATIVE: CASE EVENT DATE: 201411
